FAERS Safety Report 4756567-7 (Version None)
Quarter: 2005Q3

REPORT INFORMATION
  Report Type: 
  Country: None (occurrence: None)
  Receive Date: 20050830
  Receipt Date: 20050819
  Transmission Date: 20060218
  Serious: Yes (Other)
  Sender: FDA-Public Use
  Company Number: 200517533GDDC

PATIENT
  Age: 52 Year
  Sex: Female
  Weight: 52 kg

DRUGS (8)
  1. ARAVA [Suspect]
     Indication: RHEUMATOID ARTHRITIS
     Route: 048
     Dates: start: 20041007
  2. WARFARIN [Concomitant]
     Indication: ATRIAL FIBRILLATION
     Dosage: DOSE: VARIABLE
     Route: 048
  3. WARFARIN [Concomitant]
     Indication: MITRAL VALVE DISEASE
     Dosage: DOSE: VARIABLE
     Route: 048
  4. TIBOLONE [Concomitant]
     Indication: HORMONE REPLACEMENT THERAPY
     Route: 048
  5. DIAZEPAM [Concomitant]
     Route: 048
  6. BISOPROLOL [Concomitant]
     Indication: ATRIAL FIBRILLATION
     Route: 048
  7. ATORVASTATIN CALCIUM [Concomitant]
     Route: 048
  8. CO-PROXAMOL [Concomitant]
     Dosage: DOSE: VARIABLE
     Route: 048

REACTIONS (1)
  - MENORRHAGIA [None]
